FAERS Safety Report 5228857-5 (Version None)
Quarter: 2007Q1

REPORT INFORMATION
  Report Type: 
  Country: None (occurrence: None)
  Receive Date: 20070205
  Receipt Date: 20070130
  Transmission Date: 20070707
  Serious: Yes (Other)
  Sender: FDA-Public Use
  Company Number: US-JNJFOC-20070101477

PATIENT
  Sex: Female
  Weight: 52.16 kg

DRUGS (1)
  1. FLOXIN [Suspect]
     Indication: URINARY TRACT INFECTION
     Route: 048

REACTIONS (7)
  - ANXIETY [None]
  - DYSPNOEA [None]
  - FEAR [None]
  - HALLUCINATION [None]
  - INSOMNIA [None]
  - NIGHTMARE [None]
  - SCHIZOPHRENIA [None]
